FAERS Safety Report 8984274 (Version 2)
Quarter: 2013Q1

REPORT INFORMATION
  Report Type: Spontaneous
  Country: US (occurrence: US)
  Receive Date: 20121226
  Receipt Date: 20130217
  Transmission Date: 20140127
  Serious: Yes (Other)
  Sender: FDA-Public Use
  Company Number: US-JNJFOC-20121208728

PATIENT
  Sex: Male

DRUGS (9)
  1. REMICADE [Suspect]
     Indication: PSORIATIC ARTHROPATHY
     Route: 042
     Dates: end: 20120215
  2. ALEVE [Concomitant]
     Route: 065
  3. LIDOCAINE [Concomitant]
     Route: 061
  4. METFORMIN [Concomitant]
     Route: 065
  5. ALL OTHER THERAPEUTICS [Concomitant]
     Route: 065
  6. PANTOPRAZOLE [Concomitant]
     Route: 065
  7. FISH OIL [Concomitant]
     Route: 065
  8. NIACIN [Concomitant]
     Route: 065
  9. ZETIA [Concomitant]
     Route: 065

REACTIONS (3)
  - Palpitations [Recovered/Resolved]
  - Infusion related reaction [Recovered/Resolved]
  - Pruritus [Recovered/Resolved]
